FAERS Safety Report 13246410 (Version 1)
Quarter: 2017Q1

REPORT INFORMATION
  Report Type: Spontaneous
  Country: US (occurrence: US)
  Receive Date: 20170217
  Receipt Date: 20170217
  Transmission Date: 20170428
  Serious: Yes (Hospitalization)
  Sender: FDA-Public Use
  Company Number: US-IGSA-GBI004965

PATIENT
  Age: 58 Year
  Sex: Male

DRUGS (13)
  1. ALBUTEIN [Suspect]
     Active Substance: ALBUMIN HUMAN
     Indication: LAPAROSCOPIC SURGERY
     Route: 042
     Dates: start: 20161214, end: 20161214
  2. DRONABINOL. [Concomitant]
     Active Substance: DRONABINOL
  3. MULTIVITAMINS W/FLUORIDE [Concomitant]
  4. ALBUTEIN [Suspect]
     Active Substance: ALBUMIN HUMAN
     Indication: LAPAROSCOPIC SURGERY
     Route: 042
     Dates: start: 20161214, end: 20161214
  5. ALBUTEIN [Suspect]
     Active Substance: ALBUMIN HUMAN
     Indication: LAPAROSCOPIC SURGERY
     Route: 042
     Dates: start: 20161214, end: 20161214
  6. OXYCODONE [Concomitant]
     Active Substance: OXYCODONE
  7. ROSUVASTATIN. [Concomitant]
     Active Substance: ROSUVASTATIN
  8. ZOSYN [Concomitant]
     Active Substance: PIPERACILLIN SODIUM\TAZOBACTAM SODIUM
     Route: 042
     Dates: start: 20161214
  9. ALBUTEIN [Suspect]
     Active Substance: ALBUMIN HUMAN
     Indication: LAPAROSCOPIC SURGERY
     Route: 042
     Dates: start: 20161214, end: 20161214
  10. AMOXICILLIN. [Concomitant]
     Active Substance: AMOXICILLIN
     Dosage: DOSE UNIT:500 UNKNOWN
  11. IBUPROFEN. [Concomitant]
     Active Substance: IBUPROFEN
  12. TEMAZEPAM. [Concomitant]
     Active Substance: TEMAZEPAM
  13. MEFOXIN [Concomitant]
     Active Substance: CEFOXITIN SODIUM
     Indication: SEPSIS
     Route: 042
     Dates: start: 20161214

REACTIONS (2)
  - Anaphylactic reaction [Recovered/Resolved]
  - Sepsis [None]

NARRATIVE: CASE EVENT DATE: 20161214
